FAERS Safety Report 9032673 (Version 1)
Quarter: 2013Q1

REPORT INFORMATION
  Report Type: Report from Study
  Country: US (occurrence: US)
  Receive Date: 20130127
  Receipt Date: 20130127
  Transmission Date: 20140127
  Serious: Yes (Other)
  Sender: FDA-Public Use
  Company Number: US-US-EMD SERONO, INC.-7188672

PATIENT
  Age: 9 None
  Sex: Male
  Weight: 25 kg

DRUGS (2)
  1. SAIZEN [(SOMATROPIN (RDNA ORIGIN) FOR INJECTION)] [Suspect]
     Indication: GROWTH RETARDATION
     Route: 058
     Dates: start: 20101130
  2. STRATTERA [Suspect]
     Indication: ATTENTION DEFICIT/HYPERACTIVITY DISORDER

REACTIONS (17)
  - Petit mal epilepsy [Unknown]
  - Daydreaming [Unknown]
  - Tooth hypoplasia [Not Recovered/Not Resolved]
  - Toothache [Unknown]
  - Attention deficit/hyperactivity disorder [Not Recovered/Not Resolved]
  - Congenital bowing of long bones [Not Recovered/Not Resolved]
  - Tooth discolouration [Not Recovered/Not Resolved]
  - Melanocytic naevus [Not Recovered/Not Resolved]
  - Viral infection [Unknown]
  - Nasal congestion [Unknown]
  - Pyrexia [Unknown]
  - Appetite disorder [Recovering/Resolving]
  - Weight abnormal [Unknown]
  - Abdominal pain [Not Recovered/Not Resolved]
  - Fatigue [Not Recovered/Not Resolved]
  - Arthralgia [Recovering/Resolving]
  - Injection site bruising [Not Recovered/Not Resolved]
